FAERS Safety Report 8401160-8 (Version None)
Quarter: 2012Q2

REPORT INFORMATION
  Report Type: 
  Country: None (occurrence: None)
  Receive Date: 20120530
  Receipt Date: 20120530
  Transmission Date: 20120825
  Serious: No
  Sender: FDA-Public Use
  Company Number: None

PATIENT
  Sex: Male
  Weight: 72.5755 kg

DRUGS (1)
  1. PAROXETINE [Suspect]
     Indication: ANXIETY
     Dosage: 10 MG 1/DAY PO
     Route: 048
     Dates: start: 20080102, end: 20110315

REACTIONS (2)
  - PALPITATIONS [None]
  - HEART RATE INCREASED [None]
